FAERS Safety Report 8842407 (Version 1)
Quarter: 2012Q4

REPORT INFORMATION
  Report Type: 
  Country: IT (occurrence: IT)
  Receive Date: 20121016
  Receipt Date: 20121016
  Transmission Date: 20130627
  Serious: Yes (Death)
  Sender: FDA-Public Use
  Company Number: IT-PFIZER INC-2012253443

PATIENT
  Age: 57 Year
  Sex: Female

DRUGS (3)
  1. DAUNORUBICIN HCL [Suspect]
     Indication: ACUTE MYELOID LEUKAEMIA
     Dosage: UNK
  2. ETOPOSIDE [Suspect]
     Indication: ACUTE MYELOID LEUKAEMIA
     Dosage: UNK
  3. CYTARABINE [Suspect]
     Indication: ACUTE MYELOID LEUKAEMIA
     Dosage: UNK

REACTIONS (14)
  - Posterior reversible encephalopathy syndrome [Fatal]
  - Septic shock [Fatal]
  - Multi-organ failure [Fatal]
  - Blood pressure increased [None]
  - Fluid overload [None]
  - Escherichia sepsis [None]
  - Systemic inflammatory response syndrome [None]
  - Confusional state [None]
  - Visual impairment [None]
  - Hemianopia [None]
  - Aphasia [None]
  - Hemiparesis [None]
  - Cerebral ischaemia [None]
  - Neurological decompensation [None]
